FAERS Safety Report 5777168-8 (Version None)
Quarter: 2008Q2

REPORT INFORMATION
  Report Type: 
  Country: None (occurrence: None)
  Receive Date: 20080618
  Receipt Date: 20080611
  Transmission Date: 20081010
  Serious: Yes (Death, Life-Threatening)
  Sender: FDA-Public Use
  Company Number: DE-AVENTIS-200810954DE

PATIENT
  Age: 48 Year
  Sex: Female

DRUGS (13)
  1. ARAVA [Suspect]
     Route: 048
     Dates: end: 20080110
  2. ENBREL [Suspect]
     Route: 058
     Dates: start: 20071101, end: 20080110
  3. ALCOHOL [Suspect]
     Indication: ALCOHOL ABUSE
     Dosage: DOSE: NOT REPORTED
     Route: 048
     Dates: end: 20080101
  4. ISOZID [Concomitant]
     Route: 055
     Dates: start: 20071001, end: 20080101
  5. IBUROFEN [Concomitant]
     Indication: PAIN
     Route: 048
     Dates: end: 20080101
  6. NEXIUM [Concomitant]
     Route: 048
     Dates: end: 20080101
  7. METOPROLOL [Concomitant]
     Route: 048
     Dates: end: 20080101
  8. VIGANTOLETTEN [Concomitant]
     Indication: OSTEOPOROSIS PROPHYLAXIS
     Route: 048
     Dates: end: 20080101
  9. MULTI-VITAMINS [Concomitant]
     Dosage: DOSE: UNKNOWN
     Route: 048
     Dates: end: 20080101
  10. ARUFIL                             /00042801/ [Concomitant]
     Dosage: DOSE: NOT REPORTED
     Route: 047
  11. METAMIZOL [Concomitant]
     Dosage: DOSE: NOT REPORTED
  12. TRAMADOL HCL [Concomitant]
     Dosage: DOSE: NOT REPORTED
  13. KETOPROFEN [Concomitant]
     Dosage: DOSE: NOT REPORTED

REACTIONS (8)
  - ABDOMINAL PAIN UPPER [None]
  - ANOREXIA [None]
  - DIARRHOEA [None]
  - FATIGUE [None]
  - MULTI-ORGAN FAILURE [None]
  - NAUSEA [None]
  - PANCREATITIS NECROTISING [None]
  - RENAL PAIN [None]
